FAERS Safety Report 4394041-0 (Version None)
Quarter: 2004Q3

REPORT INFORMATION
  Report Type: 
  Country: None (occurrence: None)
  Receive Date: 20040708
  Receipt Date: 20040625
  Transmission Date: 20050211
  Serious: Yes (Other)
  Sender: FDA-Public Use
  Company Number: 04-00301

PATIENT
  Age: 8 Year
  Sex: Female
  Weight: 25 kg

DRUGS (1)
  1. PERMETHRIN [Suspect]
     Indication: LICE INFESTATION
     Dosage: 5%, 1 APPLICATION, ONE TIME, TOPICAL
     Route: 061
     Dates: start: 20040623, end: 20040624

REACTIONS (2)
  - CONVULSION [None]
  - MEDICATION ERROR [None]
